FAERS Safety Report 7006918-8 (Version None)
Quarter: 2010Q3

REPORT INFORMATION
  Report Type: 
  Country: None (occurrence: None)
  Receive Date: 20100922
  Receipt Date: 20100910
  Transmission Date: 20110219
  Serious: Yes (Hospitalization)
  Sender: FDA-Public Use
  Company Number: US-BAYER-200944076NA

PATIENT
  Age: 32 Year
  Sex: Female
  Weight: 79 kg

DRUGS (2)
  1. YASMIN [Suspect]
     Indication: PRODUCT USED FOR UNKNOWN INDICATION
     Route: 048
     Dates: start: 20030801, end: 20050601
  2. YASMIN [Suspect]
     Route: 048
     Dates: start: 20070101

REACTIONS (12)
  - ABDOMINAL DISCOMFORT [None]
  - ABDOMINAL PAIN [None]
  - ABDOMINAL PAIN LOWER [None]
  - ABDOMINAL PAIN UPPER [None]
  - BACK PAIN [None]
  - CHOLECYSTITIS CHRONIC [None]
  - CHOLELITHIASIS [None]
  - DIARRHOEA [None]
  - EPIGASTRIC DISCOMFORT [None]
  - MALABSORPTION [None]
  - NAUSEA [None]
  - WEIGHT INCREASED [None]
